FAERS Safety Report 22235330 (Version 1)
Quarter: 2023Q2

REPORT INFORMATION
  Report Type: Spontaneous
  Country: US (occurrence: None)
  Receive Date: 20230419
  Receipt Date: 20230419
  Transmission Date: 20230722
  Serious: No
  Sender: FDA-Public Use
  Company Number: None

PATIENT
  Age: 75 Year
  Sex: Female
  Weight: 58.97 kg

DRUGS (23)
  1. CAPECITABINE [Suspect]
     Active Substance: CAPECITABINE
     Indication: Gallbladder cancer
     Dosage: OTHER QUANTITY : 1000-1500MG;?FREQUENCY : TWICE A DAY;?
     Route: 048
  2. ALBUTEROL [Concomitant]
  3. ALGAL OMEGA-3 DHA [Concomitant]
  4. ANASTROZOLE [Concomitant]
  5. ATROVASTATIN [Concomitant]
  6. CALCIUM CARBONATE [Concomitant]
     Active Substance: CALCIUM CARBONATE
  7. CIPRO [Concomitant]
  8. CLARITIN [Concomitant]
  9. COLACE [Concomitant]
     Active Substance: DOCUSATE SODIUM
  10. FAMOTIDINE [Concomitant]
  11. FLONASE [Concomitant]
     Active Substance: FLUTICASONE PROPIONATE
  12. IPRATROPIUM [Concomitant]
     Active Substance: IPRATROPIUM
  13. LASIX [Concomitant]
     Active Substance: FUROSEMIDE
  14. MEGESTROL [Concomitant]
  15. METOPROLOL [Concomitant]
  16. MIRALAX [Concomitant]
     Active Substance: POLYETHYLENE GLYCOL 3350
  17. MULTIVITAMIN [Concomitant]
  18. OXYCODONE [Concomitant]
  19. VITAMIN D3 [Concomitant]
     Active Substance: CHOLECALCIFEROL
  20. POTASSIUM CHLORIDE [Concomitant]
  21. TEMAZEPAM [Concomitant]
     Active Substance: TEMAZEPAM
  22. TYLENOL [Concomitant]
     Active Substance: ACETAMINOPHEN
  23. ZOFRAN [Concomitant]
     Active Substance: ONDANSETRON HYDROCHLORIDE

REACTIONS (1)
  - Hospice care [None]
